FAERS Safety Report 23219941 (Version 2)
Quarter: 2023Q4

REPORT INFORMATION
  Report Type: Spontaneous
  Country: JP (occurrence: JP)
  Receive Date: 20231122
  Receipt Date: 20231213
  Transmission Date: 20240110
  Serious: Yes (Hospitalization, Other)
  Sender: FDA-Public Use
  Company Number: JP-BAYER-2023A163405

PATIENT
  Age: 82 Year
  Sex: Male

DRUGS (2)
  1. RIVAROXABAN [Suspect]
     Active Substance: RIVAROXABAN
     Indication: Cerebrovascular accident prophylaxis
     Dosage: DAILY DOSE 15 MG
     Route: 048
     Dates: end: 202311
  2. RIVAROXABAN [Suspect]
     Active Substance: RIVAROXABAN
     Indication: Thrombosis prophylaxis
     Route: 048

REACTIONS (9)
  - Altered state of consciousness [Unknown]
  - Ischaemic hepatitis [Unknown]
  - Multiple organ dysfunction syndrome [Unknown]
  - Anuria [Unknown]
  - Hypothermia [Unknown]
  - Prothrombin time prolonged [Unknown]
  - Prothrombin level decreased [Unknown]
  - Alanine aminotransferase increased [Unknown]
  - Aspartate aminotransferase increased [Unknown]

NARRATIVE: CASE EVENT DATE: 20231114
